FAERS Safety Report 8383644-4 (Version None)
Quarter: 2012Q2

REPORT INFORMATION
  Report Type: 
  Country: None (occurrence: None)
  Receive Date: 20120524
  Receipt Date: 20120517
  Transmission Date: 20120825
  Serious: Yes (Life-Threatening, Hospitalization)
  Sender: FDA-Public Use
  Company Number: JP-B.I. PHARMACEUTICALS,INC./RIDGEFIELD-2011-BP-12605NB

PATIENT
  Age: 77 Year
  Sex: Male

DRUGS (4)
  1. ASPIRIN [Concomitant]
     Route: 065
  2. PRADAXA [Suspect]
     Indication: ATRIAL FIBRILLATION
     Dosage: 220 MG
     Route: 048
     Dates: start: 20110322
  3. MENEST [Concomitant]
     Indication: PARKINSON'S DISEASE
     Dosage: 150 MG
     Route: 065
     Dates: start: 20110425
  4. LYRICA [Concomitant]
     Route: 065

REACTIONS (7)
  - RENAL FAILURE ACUTE [None]
  - SHOCK HAEMORRHAGIC [None]
  - HAEMORRHAGE [None]
  - RENAL ARTERY OCCLUSION [None]
  - BLOOD CREATINE PHOSPHOKINASE INCREASED [None]
  - MULTI-ORGAN FAILURE [None]
  - RENAL TUBULAR ACIDOSIS [None]
